FAERS Safety Report 17116235 (Version 2)
Quarter: 2019Q4

REPORT INFORMATION
  Report Type: Spontaneous
  Country: SI (occurrence: SI)
  Receive Date: 20191205
  Receipt Date: 20191209
  Transmission Date: 20200122
  Serious: Yes (Hospitalization)
  Sender: FDA-Public Use
  Company Number: SI-EMD SERONO-E2B_90072972

PATIENT
  Age: 56 Year
  Sex: Female

DRUGS (9)
  1. GLUCOPHAGE [Suspect]
     Active Substance: METFORMIN HYDROCHLORIDE
     Indication: TYPE 2 DIABETES MELLITUS
     Route: 048
  2. SORVASTA [Concomitant]
     Active Substance: ROSUVASTATIN CALCIUM
     Indication: HYPERCHOLESTEROLAEMIA
     Dosage: LONG-TERM THERAPY
     Route: 048
  3. BRILIQUE [Concomitant]
     Active Substance: TICAGRELOR
     Indication: ARTERIAL THROMBOSIS
     Dosage: 1 TABLET IN THE MORNINGS + 1 TABLET IN THE EVENINGS?THERAPY UPTO 26 JAN 2020
     Route: 048
  4. CONCOR COR [Concomitant]
     Active Substance: BISOPROLOL FUMARATE
     Indication: HYPERTENSION
     Dosage: LONG-TERM THERAPY
     Route: 048
  5. EZETIMIBE W/ROSUVASTATIN CALCIUM [Concomitant]
     Active Substance: EZETIMIBE\ROSUVASTATIN
     Indication: HYPERCHOLESTEROLAEMIA
     Dosage: 10MG/10MG TABLET?LONG-TERM THERAPY
     Route: 048
  6. ASPIRIN                            /00002701/ [Concomitant]
     Active Substance: ASPIRIN
     Indication: CARDIOVASCULAR DISORDER
     Dosage: LONG-TERM THERAPY
     Route: 048
  7. PRENEWEL [Concomitant]
     Active Substance: INDAPAMIDE\PERINDOPRIL ERBUMINE
     Indication: ESSENTIAL HYPERTENSION
     Dosage: 4MG/1.25MG TABLET - LONG-TERM THERAPY
     Route: 048
  8. INSULATARD                         /00646002/ [Concomitant]
     Active Substance: INSULIN HUMAN
     Indication: TYPE 2 DIABETES MELLITUS
     Dosage: 100 IU/ML PEN, IN THE EVENINGS?PRE FILLED SYRINGES, PENS - BIOLOGICAL DRUG, LONG.-TERM THERAPY
     Route: 058
  9. NOVORAPID [Concomitant]
     Active Substance: INSULIN ASPART
     Indication: TYPE 2 DIABETES MELLITUS
     Dosage: 100 UNITS/ML PEN?PRE FILLED SYRINGES, PENS - BIOLOGICAL DRUG, LONG-TERM THERAPY
     Route: 058

REACTIONS (1)
  - Metabolic acidosis [Recovering/Resolving]

NARRATIVE: CASE EVENT DATE: 2019
